FAERS Safety Report 9302204 (Version 2)
Quarter: 2013Q4

REPORT INFORMATION
  Report Type: Spontaneous
  Country: US (occurrence: US)
  Receive Date: 20130522
  Receipt Date: 20131108
  Transmission Date: 20140711
  Serious: Yes (Hospitalization)
  Sender: FDA-Public Use
  Company Number: US-B.I. PHARMACEUTICALS,INC./RIDGEFIELD-2013-BI-14112BP

PATIENT
  Sex: Female
  Weight: 53.52 kg

DRUGS (14)
  1. PRADAXA [Suspect]
     Indication: ANTICOAGULANT THERAPY
     Route: 048
     Dates: start: 20111110, end: 20120428
  2. SIMVASTATIN [Concomitant]
     Indication: HYPERLIPIDAEMIA
     Dosage: 40 MG
  3. PRILOSEC [Concomitant]
     Indication: GASTROOESOPHAGEAL REFLUX DISEASE
     Dosage: 20 MG
  4. SINGULAIR [Concomitant]
     Indication: CHRONIC OBSTRUCTIVE PULMONARY DISEASE
     Dosage: 10 MG
     Route: 048
  5. SYMBICORT [Concomitant]
     Indication: CHRONIC OBSTRUCTIVE PULMONARY DISEASE
     Dosage: 2 PUF
     Route: 055
  6. LASIX [Concomitant]
     Dosage: 40 MG
     Route: 048
  7. COREG [Concomitant]
     Indication: HYPERTENSION
     Dosage: 6.25 MG
  8. ALPRAZOLAM [Concomitant]
     Route: 048
  9. MULTIVITAMIN [Concomitant]
     Route: 048
  10. FLONASE [Concomitant]
     Dosage: 2 PUF
     Route: 055
  11. ATROVENT [Concomitant]
     Route: 055
  12. COMBIVENT [Concomitant]
     Indication: CHRONIC OBSTRUCTIVE PULMONARY DISEASE
     Route: 055
  13. FLOVENT [Concomitant]
     Route: 055
  14. PREDNISONE [Concomitant]
     Indication: CHRONIC OBSTRUCTIVE PULMONARY DISEASE
     Dosage: 10 MG
     Route: 048

REACTIONS (4)
  - Pulmonary alveolar haemorrhage [Recovered/Resolved]
  - Coagulopathy [Unknown]
  - Pneumonia [Unknown]
  - Contusion [Unknown]
